FAERS Safety Report 9219079 (Version 5)
Quarter: 2015Q2

REPORT INFORMATION
  Report Type: Report from Study
  Country: JP (occurrence: JP)
  Receive Date: 20130409
  Receipt Date: 20150616
  Transmission Date: 20150821
  Serious: Yes (Hospitalization, Other)
  Sender: FDA-Public Use
  Company Number: PHHY2013JP033418

PATIENT
  Age: 39 Year
  Sex: Male

DRUGS (27)
  1. CLOZARIL [Suspect]
     Active Substance: CLOZAPINE
     Indication: SCHIZOPHRENIA, DISORGANISED TYPE
     Dosage: 12.5 MG
     Route: 048
     Dates: start: 20120626, end: 20120626
  2. CLOZARIL [Suspect]
     Active Substance: CLOZAPINE
     Dosage: 400 MG, QD
     Route: 048
     Dates: start: 20120905, end: 20120911
  3. CLOZARIL [Suspect]
     Active Substance: CLOZAPINE
     Dosage: 425 MG, QD
     Route: 048
     Dates: start: 20120912, end: 20120925
  4. LOSIZOPILON [Concomitant]
     Dosage: 50 MG, QD
     Route: 048
     Dates: start: 20120721, end: 20120723
  5. CLOZARIL [Suspect]
     Active Substance: CLOZAPINE
     Dosage: 150 MG, QD
     Route: 048
     Dates: start: 20120710, end: 20120712
  6. CLOZARIL [Suspect]
     Active Substance: CLOZAPINE
     Dosage: 175 MG, QD
     Route: 048
     Dates: start: 20120713, end: 20120715
  7. LOSIZOPILON [Concomitant]
     Dosage: 75 MG, QD
     Route: 048
     Dates: start: 20120718, end: 20120720
  8. CLOZARIL [Suspect]
     Active Substance: CLOZAPINE
     Dosage: 50 MG, QD
     Route: 048
     Dates: start: 20120630, end: 20120702
  9. CLOZARIL [Suspect]
     Active Substance: CLOZAPINE
     Dosage: 125 MG, QD
     Route: 048
     Dates: start: 20120707, end: 20120709
  10. CLOZARIL [Suspect]
     Active Substance: CLOZAPINE
     Dosage: 275 MG, QD
     Route: 048
     Dates: start: 20120808, end: 20120814
  11. CLOZARIL [Suspect]
     Active Substance: CLOZAPINE
     Dosage: 475 MG, QD
     Route: 048
     Dates: start: 20121003, end: 20121016
  12. CLOZARIL [Suspect]
     Active Substance: CLOZAPINE
     Dosage: 500 MG, QD
     Route: 048
     Dates: start: 20121017
  13. LOSIZOPILON [Concomitant]
     Dosage: 25 MG, QD
     Route: 048
     Dates: start: 20120724, end: 20120726
  14. CLOZARIL [Suspect]
     Active Substance: CLOZAPINE
     Dosage: 100 MG, QD
     Route: 048
     Dates: start: 20120705, end: 20120706
  15. CLOZARIL [Suspect]
     Active Substance: CLOZAPINE
     Dosage: 225 MG, QD
     Route: 048
     Dates: start: 20120725, end: 20120731
  16. AKINETON [Concomitant]
     Active Substance: BIPERIDEN HYDROCHLORIDE
     Indication: SCHIZOPHRENIA, DISORGANISED TYPE
     Dosage: 6 MG, QD
     Route: 048
  17. CLOZARIL [Suspect]
     Active Substance: CLOZAPINE
     Dosage: 300 MG, QD
     Route: 048
     Dates: start: 20120815, end: 20120821
  18. CLOZARIL [Suspect]
     Active Substance: CLOZAPINE
     Dosage: 450 MG, QD
     Route: 048
     Dates: start: 20120926, end: 20121002
  19. CLOZARIL [Suspect]
     Active Substance: CLOZAPINE
     Dosage: 250 MG, QD
     Route: 048
     Dates: start: 20120801, end: 20120807
  20. CLOZARIL [Suspect]
     Active Substance: CLOZAPINE
     Dosage: 325 MG, QD
     Route: 048
     Dates: start: 20120822, end: 20120828
  21. SENIRAN [Concomitant]
     Active Substance: BROMAZEPAM
     Indication: SCHIZOPHRENIA, DISORGANISED TYPE
     Dosage: 15 MG, QD
     Route: 048
  22. CLOZARIL [Suspect]
     Active Substance: CLOZAPINE
     Dosage: 75 MG, QD
     Route: 048
     Dates: start: 20120703, end: 20120704
  23. CLOZARIL [Suspect]
     Active Substance: CLOZAPINE
     Dosage: 350 MG, QD
     Route: 048
     Dates: start: 20120829, end: 20120904
  24. CLOZARIL [Suspect]
     Active Substance: CLOZAPINE
     Dosage: 25 MG, QD
     Route: 048
     Dates: start: 20120627, end: 20120629
  25. CLOZARIL [Suspect]
     Active Substance: CLOZAPINE
     Dosage: 200 MG, QD
     Route: 048
     Dates: start: 20120716, end: 20120724
  26. DIAZEPAM. [Concomitant]
     Active Substance: DIAZEPAM
     Indication: SCHIZOPHRENIA, DISORGANISED TYPE
     Dosage: 10 MG, QD
     Route: 048
  27. LOSIZOPILON [Concomitant]
     Indication: SCHIZOPHRENIA, DISORGANISED TYPE
     Dosage: 100 MG, QD
     Route: 048
     Dates: start: 20120226, end: 20120717

REACTIONS (6)
  - Appendicitis [Recovered/Resolved]
  - Blood pressure decreased [Unknown]
  - Appendicitis [Recovered/Resolved]
  - Constipation [Recovering/Resolving]
  - Ileus [Recovered/Resolved]
  - Infection [Recovering/Resolving]

NARRATIVE: CASE EVENT DATE: 20120626
